FAERS Safety Report 10373340 (Version 1)
Quarter: 2014Q3

REPORT INFORMATION
  Report Type: Spontaneous
  Country: NL (occurrence: NL)
  Receive Date: 20140808
  Receipt Date: 20140808
  Transmission Date: 20150326
  Serious: Yes (Death)
  Sender: FDA-Public Use
  Company Number: NL-ASTRAZENECA-2014SE56829

PATIENT
  Age: 25752 Day
  Sex: Male
  Weight: 70 kg

DRUGS (8)
  1. LEVODOPA/BENSERAZIDE [Concomitant]
     Active Substance: BENSERAZIDE\LEVODOPA
     Indication: PARKINSONISM
     Dosage: 100/25MG, 1 DF  AS NECESSARY
     Route: 048
     Dates: start: 20140123
  2. GABAPENTINE [Suspect]
     Active Substance: GABAPENTIN
     Indication: PAIN
     Route: 048
     Dates: start: 20140721
  3. GABAPENTINE [Suspect]
     Active Substance: GABAPENTIN
     Indication: PAIN
     Route: 048
     Dates: start: 20140724
  4. LEVODOPA/CARBIDOPA/ENTACAPON [Concomitant]
     Indication: PARKINSONISM
     Dosage: 100/25/200MG 1 DF SEVEN TIMES A DAY
     Route: 048
     Dates: start: 20140123
  5. ZOPICLON [Concomitant]
     Active Substance: ZOPICLONE
     Indication: SLEEP DISORDER
     Route: 048
     Dates: start: 20140319
  6. QUETIAPINE [Suspect]
     Active Substance: QUETIAPINE
     Indication: HALLUCINATION
     Route: 048
     Dates: start: 20140102
  7. LEVODOPA/BENSERAZIDE [Concomitant]
     Active Substance: BENSERAZIDE\LEVODOPA
     Indication: PARKINSONISM
     Dosage: 50/12,5MG, 1 DF SEVEN TIMES A DAY
     Route: 048
     Dates: start: 20140123
  8. DICLOFENAC-NATRIUM [Concomitant]
     Indication: PAIN
     Route: 048
     Dates: start: 20140710

REACTIONS (2)
  - Sudden death [Fatal]
  - Syncope [Fatal]

NARRATIVE: CASE EVENT DATE: 20140723
